FAERS Safety Report 18095260 (Version 1)
Quarter: 2020Q3

REPORT INFORMATION
  Report Type: Spontaneous
  Country: US (occurrence: US)
  Receive Date: 20200730
  Receipt Date: 20200730
  Transmission Date: 20201103
  Serious: Yes (Hospitalization)
  Sender: FDA-Public Use
  Company Number: US-MYLANLABS-2020M1068338

PATIENT
  Age: 47 Year
  Sex: Male

DRUGS (5)
  1. EPTIFIBATIDE. [Concomitant]
     Active Substance: EPTIFIBATIDE
     Indication: PRODUCT USED FOR UNKNOWN INDICATION
     Route: 065
  2. DEXTROSE. [Concomitant]
     Active Substance: DEXTROSE
     Indication: ANTICOAGULANT THERAPY
     Dosage: PURGING SOLUTION, INTRAVASCULAR LEFT VENTRICULAR ASSIST (IMPELLA 5.0) DEVICE
  3. HEPARIN [Suspect]
     Active Substance: HEPARIN SODIUM
     Indication: ANTICOAGULANT THERAPY
     Dosage: PURGING SOLUTION, INTRAVASCULAR LEFT VENTRICULAR ASSIST (IMPELLA 5.0) DEVICE
  4. HEPARIN [Suspect]
     Active Substance: HEPARIN SODIUM
     Dosage: SYSTEMIC HEPARIN
  5. TICAGRELOR. [Concomitant]
     Active Substance: TICAGRELOR
     Indication: PRODUCT USED FOR UNKNOWN INDICATION
     Route: 065

REACTIONS (3)
  - Heparin-induced thrombocytopenia [Recovering/Resolving]
  - Haemoglobin decreased [Recovering/Resolving]
  - Haemorrhage [Recovering/Resolving]
